FAERS Safety Report 25888575 (Version 1)
Quarter: 2025Q4

REPORT INFORMATION
  Report Type: Spontaneous
  Country: EU (occurrence: EU)
  Receive Date: 20251007
  Receipt Date: 20251007
  Transmission Date: 20260118
  Serious: Yes (Other)
  Sender: CHEPLAPHARM
  Company Number: None

PATIENT
  Age: 63 Year
  Sex: Male
  Weight: 46.799 kg

DRUGS (40)
  1. QUETIAPINE [Suspect]
     Active Substance: QUETIAPINE
     Indication: Depression
     Dosage: 100 MG IN THE MORNING AND 300 MG IN THE EVENING; 50MG LP 2-0-0; 50MG LP IN THE EVENING
     Route: 048
     Dates: start: 2021, end: 2023
  2. QUETIAPINE [Suspect]
     Active Substance: QUETIAPINE
     Indication: Depression
     Dosage: 50MG IN THE EVENING?DAILY DOSE: 50 MILLIGRAM
     Route: 048
     Dates: start: 202306
  3. QUETIAPINE [Suspect]
     Active Substance: QUETIAPINE
     Indication: Depression
     Dosage: 50MG 0-0-1?DAILY DOSE: 50 MILLIGRAM
     Route: 048
     Dates: start: 202405
  4. QUETIAPINE [Suspect]
     Active Substance: QUETIAPINE
     Indication: Depression
     Dosage: 100MG 0-0-1?DAILY DOSE: 100 MILLIGRAM
     Route: 048
     Dates: start: 202407
  5. QUETIAPINE [Suspect]
     Active Substance: QUETIAPINE
     Indication: Depression
     Dosage: 150MG 0-0-1?DAILY DOSE: 150 MILLIGRAM
     Route: 048
     Dates: start: 202409
  6. QUETIAPINE [Suspect]
     Active Substance: QUETIAPINE
     Indication: Depression
     Dosage: 200MG 0-0-1?DAILY DOSE: 200 MILLIGRAM
     Route: 048
     Dates: start: 202409
  7. QUETIAPINE [Suspect]
     Active Substance: QUETIAPINE
     Indication: Depression
     Dosage: 100MG-0-200MG?DAILY DOSE: 300 MILLIGRAM
     Route: 048
     Dates: start: 202503
  8. QUETIAPINE [Suspect]
     Active Substance: QUETIAPINE
     Indication: Depression
     Dosage: 100MG-0-300MG?DAILY DOSE: 400 MILLIGRAM
     Route: 048
     Dates: start: 202504
  9. KARDEGIC [Suspect]
     Active Substance: ASPIRIN DL-LYSINE
     Dosage: DAILY DOSE: 160 MILLIGRAM
  10. NEBIVOLOL [Suspect]
     Active Substance: NEBIVOLOL
     Dosage: 5MG 1-0-0?DAILY DOSE: 5 MILLIGRAM
  11. EZETIMIBE\ROSUVASTATIN [Suspect]
     Active Substance: EZETIMIBE\ROSUVASTATIN
     Dosage: 0-0-1
  12. PERINDOPRIL [Suspect]
     Active Substance: PERINDOPRIL
     Dosage: 1-0-0?DAILY DOSE: 2.5 MILLIGRAM
  13. ESCITALOPRAM [Suspect]
     Active Substance: ESCITALOPRAM OXALATE
     Dosage: 30 MG
     Dates: start: 202405
  14. ESCITALOPRAM [Suspect]
     Active Substance: ESCITALOPRAM OXALATE
     Dosage: 20MG 1.5 CPM/DAY?DAILY DOSE: 1.5 DOSAGE FORM
  15. LOXAPINE [Suspect]
     Active Substance: LOXAPINE
     Indication: Delusion
     Dosage: 25MG/ML: 10MG-0-15MG; 15 DROPS IN THE EVENING?DAILY DOSE: 25 MILLIGRAM
     Dates: start: 202306
  16. LOXAPINE [Suspect]
     Active Substance: LOXAPINE
     Indication: Hallucination, visual
     Dosage: 25MG/ML: 10MG-0-15MG; 15 DROPS IN THE EVENING?DAILY DOSE: 25 MILLIGRAM
     Dates: start: 202306
  17. LOXAPINE [Suspect]
     Active Substance: LOXAPINE
     Indication: Depression
     Dosage: 25MG/ML: 10MG-0-15MG; 15 DROPS IN THE EVENING?DAILY DOSE: 25 MILLIGRAM
     Dates: start: 202306
  18. LOXAPINE [Suspect]
     Active Substance: LOXAPINE
     Indication: Delusion
     Dosage: 5MG-0-10MG?DAILY DOSE: 15 MILLIGRAM
     Dates: start: 202405
  19. LOXAPINE [Suspect]
     Active Substance: LOXAPINE
     Indication: Hallucination, visual
     Dosage: 5MG-0-10MG?DAILY DOSE: 15 MILLIGRAM
     Dates: start: 202405
  20. LOXAPINE [Suspect]
     Active Substance: LOXAPINE
     Indication: Depression
     Dosage: 5MG-0-10MG?DAILY DOSE: 15 MILLIGRAM
     Dates: start: 202405
  21. LOXAPINE [Suspect]
     Active Substance: LOXAPINE
     Indication: Delusion
     Dosage: 5MG 1-0-1?DAILY DOSE: 10 MILLIGRAM
     Dates: start: 202407
  22. LOXAPINE [Suspect]
     Active Substance: LOXAPINE
     Indication: Hallucination, visual
     Dosage: 5MG 1-0-1?DAILY DOSE: 10 MILLIGRAM
     Dates: start: 202407
  23. LOXAPINE [Suspect]
     Active Substance: LOXAPINE
     Indication: Depression
     Dosage: 5MG 1-0-1?DAILY DOSE: 10 MILLIGRAM
     Dates: start: 202407
  24. LOXAPINE [Suspect]
     Active Substance: LOXAPINE
     Indication: Delusion
     Dosage: 5MG 0-0-1?DAILY DOSE: 5 MILLIGRAM
     Dates: start: 202503
  25. LOXAPINE [Suspect]
     Active Substance: LOXAPINE
     Indication: Hallucination, visual
     Dosage: 5MG 0-0-1?DAILY DOSE: 5 MILLIGRAM
     Dates: start: 202503
  26. LOXAPINE [Suspect]
     Active Substance: LOXAPINE
     Indication: Depression
     Dosage: 5MG 0-0-1?DAILY DOSE: 5 MILLIGRAM
     Dates: start: 202503
  27. LOXAPINE [Suspect]
     Active Substance: LOXAPINE
     Indication: Delusion
     Dosage: 5MG-0-10MG?DAILY DOSE: 15 MILLIGRAM
     Dates: start: 202504
  28. LOXAPINE [Suspect]
     Active Substance: LOXAPINE
     Indication: Hallucination, visual
     Dosage: 5MG-0-10MG?DAILY DOSE: 15 MILLIGRAM
     Dates: start: 202504
  29. LOXAPINE [Suspect]
     Active Substance: LOXAPINE
     Indication: Depression
     Dosage: 5MG-0-10MG?DAILY DOSE: 15 MILLIGRAM
     Dates: start: 202504
  30. LOXAPINE [Suspect]
     Active Substance: LOXAPINE
     Indication: Delusion
     Dosage: 10MG-0-15MG?DAILY DOSE: 25 MILLIGRAM
     Dates: start: 20250429, end: 20250531
  31. LOXAPINE [Suspect]
     Active Substance: LOXAPINE
     Indication: Hallucination, visual
     Dosage: 10MG-0-15MG?DAILY DOSE: 25 MILLIGRAM
     Dates: start: 20250429, end: 20250531
  32. LOXAPINE [Suspect]
     Active Substance: LOXAPINE
     Indication: Depression
     Dosage: 10MG-0-15MG?DAILY DOSE: 25 MILLIGRAM
     Dates: start: 20250429, end: 20250531
  33. LOXAPINE [Suspect]
     Active Substance: LOXAPINE
     Indication: Delusion
     Dosage: 5MG IN THE MORNING?DAILY DOSE: 5 MILLIGRAM
  34. LOXAPINE [Suspect]
     Active Substance: LOXAPINE
     Indication: Hallucination, visual
     Dosage: 5MG IN THE MORNING?DAILY DOSE: 5 MILLIGRAM
  35. LOXAPINE [Suspect]
     Active Substance: LOXAPINE
     Indication: Depression
     Dosage: 5MG IN THE MORNING?DAILY DOSE: 5 MILLIGRAM
  36. POTASSIUM BITARTRATE\SODIUM BICARBONATE [Suspect]
     Active Substance: POTASSIUM BITARTRATE\SODIUM BICARBONATE
     Dosage: 1G 3 TABLETS/DAY EVERY 6 HOURS; AS NEEDED?DAILY DOSE: 3 DOSAGE FORM
  37. CHOLECALCIFEROL [Suspect]
     Active Substance: CHOLECALCIFEROL
     Dosage: 1 AMPOULE PER MONTH ON THE 1ST OF THE MONTH
  38. POLYETHYLENE GLYCOLS [Suspect]
     Active Substance: POLYETHYLENE GLYCOLS
     Dosage: 1-0-0
  39. NORMACOL [Suspect]
     Active Substance: HERBALS\KARAYA GUM
     Dosage: AS NEEDED
  40. OXAZEPAM [Suspect]
     Active Substance: OXAZEPAM
     Dosage: AT BEDTIME?DAILY DOSE: 10 MILLIGRAM

REACTIONS (3)
  - Epilepsy [Unknown]
  - Eosinophilia [Not Recovered/Not Resolved]
  - Drug ineffective [Unknown]

NARRATIVE: CASE EVENT DATE: 20230101
